FAERS Safety Report 14609568 (Version 1)
Quarter: 2018Q1

REPORT INFORMATION
  Report Type: Spontaneous
  Country: US (occurrence: US)
  Receive Date: 20180307
  Receipt Date: 20180307
  Transmission Date: 20180509
  Serious: No
  Sender: FDA-Public Use
  Company Number: US-ALLERGAN-1730854US

PATIENT
  Sex: Male

DRUGS (2)
  1. TRIPTAN                            /00439301/ [Concomitant]
     Active Substance: OXITRIPTAN
     Indication: MIGRAINE
  2. VIIBRYD [Suspect]
     Active Substance: VILAZODONE HYDROCHLORIDE
     Indication: DEPRESSION
     Dosage: UNK
     Route: 048
     Dates: start: 201707, end: 201707

REACTIONS (4)
  - Diarrhoea [Unknown]
  - Drug ineffective [Unknown]
  - Vision blurred [Unknown]
  - Visual impairment [Unknown]

NARRATIVE: CASE EVENT DATE: 2017
